FAERS Safety Report 7097423-1 (Version None)
Quarter: 2010Q4

REPORT INFORMATION
  Report Type: 
  Country: None (occurrence: None)
  Receive Date: 20101111
  Receipt Date: 20101108
  Transmission Date: 20110411
  Serious: Yes (Disabling, Other)
  Sender: FDA-Public Use
  Company Number: BR-PFIZER INC-2010138157

PATIENT
  Age: 33 Year
  Sex: Male

DRUGS (5)
  1. SUTENT [Suspect]
     Indication: BONE SARCOMA
     Dosage: 50 MG, 1X/DAY
     Route: 048
     Dates: start: 20100901
  2. FRAGMIN [Concomitant]
     Indication: ANTICOAGULANT THERAPY
     Dosage: UNK
     Dates: start: 20100914
  3. CIPRAMIL [Concomitant]
     Indication: DEPRESSION
     Dosage: UNK
     Dates: start: 20100701
  4. DAFLON [Concomitant]
     Indication: ANTIALLERGIC THERAPY
     Dosage: 500 MG, 2X/DAY
     Dates: start: 20100801
  5. OMEPRAZOLE [Concomitant]
     Dosage: UNK
     Dates: start: 20070101

REACTIONS (10)
  - BLISTER [None]
  - DERMATITIS ALLERGIC [None]
  - IMPAIRED HEALING [None]
  - OEDEMA PERIPHERAL [None]
  - PURULENT DISCHARGE [None]
  - RASH [None]
  - WEIGHT DECREASED [None]
  - WOUND [None]
  - WOUND COMPLICATION [None]
  - YELLOW SKIN [None]
